FAERS Safety Report 8477212-3 (Version None)
Quarter: 2012Q2

REPORT INFORMATION
  Report Type: 
  Country: None (occurrence: None)
  Receive Date: 20120625
  Receipt Date: 20120625
  Transmission Date: 20120825
  Serious: Yes (Disabling)
  Sender: FDA-Public Use
  Company Number: None

PATIENT
  Age: 68 Year
  Sex: Female
  Weight: 61.2356 kg

DRUGS (2)
  1. AVELOX [Suspect]
     Indication: NASOPHARYNGITIS
     Dosage: 10 1 DAILY PO
     Route: 048
     Dates: start: 20110401, end: 20110410
  2. AVELOX [Suspect]
     Indication: EAR INFECTION
     Dosage: 10 1 DAILY PO
     Route: 048
     Dates: start: 20110401, end: 20110410

REACTIONS (6)
  - INSOMNIA [None]
  - ARTHRALGIA [None]
  - BONE PAIN [None]
  - BACK PAIN [None]
  - PAIN IN EXTREMITY [None]
  - FEELING HOT [None]
